FAERS Safety Report 5568222-4 (Version None)
Quarter: 2007Q4

REPORT INFORMATION
  Report Type: 
  Country: None (occurrence: None)
  Receive Date: 20071220
  Receipt Date: 20071219
  Transmission Date: 20080405
  Serious: Yes (Hospitalization)
  Sender: FDA-Public Use
  Company Number: AU-BRISTOL-MYERS SQUIBB COMPANY-14019871

PATIENT
  Age: 71 Year
  Sex: Female

DRUGS (3)
  1. AVAPRO [Suspect]
     Indication: ESSENTIAL HYPERTENSION
     Route: 048
     Dates: end: 20060109
  2. LASIX [Suspect]
     Indication: ESSENTIAL HYPERTENSION
     Route: 048
  3. MOBIC [Suspect]
     Indication: ARTHRITIS
     Route: 048
     Dates: end: 20060109

REACTIONS (3)
  - HYPOVOLAEMIA [None]
  - RENAL FAILURE ACUTE [None]
  - UTERINE ISCHAEMIA [None]
